FAERS Safety Report 9915508 (Version 2)
Quarter: 2014Q1

REPORT INFORMATION
  Report Type: Report from Study
  Country: ID (occurrence: ID)
  Receive Date: 20140221
  Receipt Date: 20140221
  Transmission Date: 20141002
  Serious: Yes (Hospitalization, Other)
  Sender: FDA-Public Use
  Company Number: ID-BRISTOL-MYERS SQUIBB COMPANY-16449811

PATIENT
  Age: 59 Year
  Sex: Male

DRUGS (3)
  1. APIXABAN [Suspect]
     Indication: THROMBOSIS PROPHYLAXIS
     Route: 048
     Dates: start: 20101227, end: 20120309
  2. VALSARTAN [Concomitant]
     Dates: start: 20090518
  3. AMLODIPINE [Concomitant]
     Dates: start: 20090318

REACTIONS (1)
  - Cerebral haemorrhage [Recovered/Resolved with Sequelae]
